FAERS Safety Report 6911481-3 (Version None)
Quarter: 2010Q3

REPORT INFORMATION
  Report Type: 
  Country: None (occurrence: None)
  Receive Date: 20100806
  Receipt Date: 20100727
  Transmission Date: 20110219
  Serious: Yes (Hospitalization, Other)
  Sender: FDA-Public Use
  Company Number: US-ELI_LILLY_AND_COMPANY-US201007006955

PATIENT
  Age: 79 Year
  Sex: Female

DRUGS (6)
  1. ALIMTA [Suspect]
     Indication: PLEURAL MESOTHELIOMA MALIGNANT
     Dosage: 500 MG/M2, OTHER
     Dates: start: 20100401
  2. DOXORUBICIN HCL [Concomitant]
  3. CISPLATIN [Concomitant]
     Dosage: 75 MG/M2, UNK
  4. CISPLATIN [Concomitant]
     Dosage: UNK, UNKNOWN
  5. VITAMIN B-12 [Concomitant]
  6. FOLIC ACID [Concomitant]

REACTIONS (2)
  - MUCOSAL INFLAMMATION [None]
  - PHARYNGEAL DISORDER [None]
